FAERS Safety Report 13226525 (Version 2)
Quarter: 2017Q1

REPORT INFORMATION
  Report Type: Spontaneous
  Country: JP (occurrence: JP)
  Receive Date: 20170213
  Receipt Date: 20170303
  Transmission Date: 20170428
  Serious: Yes (Hospitalization)
  Sender: FDA-Public Use
  Company Number: JP-SA-2017SA021287

PATIENT
  Age: 44 Year
  Sex: Male

DRUGS (4)
  1. ARGATROBAN. [Concomitant]
     Active Substance: ARGATROBAN
  2. EDARAVONE [Concomitant]
     Active Substance: EDARAVONE
  3. CLOPIDOGREL BISULFATE. [Suspect]
     Active Substance: CLOPIDOGREL BISULFATE
     Indication: VERTEBRAL ARTERY DISSECTION
     Route: 048
  4. NIFEDIPINE. [Concomitant]
     Active Substance: NIFEDIPINE

REACTIONS (3)
  - Nuclear magnetic resonance imaging abnormal [Unknown]
  - Scan abnormal [Unknown]
  - Vertebral artery aneurysm [Recovering/Resolving]
